FAERS Safety Report 22014159 (Version 2)
Quarter: 2023Q1

REPORT INFORMATION
  Report Type: Other
  Country: US (occurrence: None)
  Receive Date: 20230221
  Receipt Date: 20230224
  Transmission Date: 20230418
  Serious: Yes (Other)
  Sender: FDA-Public Use
  Company Number: US-ROCHE-3289883

PATIENT
  Age: 64 Year
  Sex: Female

DRUGS (15)
  1. KADCYLA [Suspect]
     Active Substance: ADO-TRASTUZUMAB EMTANSINE
     Indication: Breast cancer female
     Route: 065
     Dates: start: 202110
  2. KADCYLA [Suspect]
     Active Substance: ADO-TRASTUZUMAB EMTANSINE
     Indication: Hypokalaemia
  3. PERJETA [Suspect]
     Active Substance: PERTUZUMAB
     Indication: Product used for unknown indication
     Route: 065
     Dates: start: 202002, end: 202110
  4. HERCEPTIN [Suspect]
     Active Substance: TRASTUZUMAB
     Indication: Product used for unknown indication
     Route: 065
  5. DECADRON [Concomitant]
     Active Substance: DEXAMETHASONE
     Route: 048
     Dates: start: 20220817
  6. COLACE [Concomitant]
     Active Substance: DOCUSATE SODIUM
  7. FERGON [Concomitant]
     Active Substance: FERROUS GLUCONATE
  8. LASIX [Concomitant]
     Active Substance: FUROSEMIDE
  9. FEMARA [Concomitant]
     Active Substance: LETROZOLE
  10. AVITAN [Concomitant]
  11. PROTONIX [Concomitant]
     Active Substance: PANTOPRAZOLE SODIUM
  12. KLOR-CON [Concomitant]
     Active Substance: POTASSIUM CHLORIDE
  13. MIRAPEX [Concomitant]
     Active Substance: PRAMIPEXOLE DIHYDROCHLORIDE
  14. CARAFATE [Concomitant]
     Active Substance: SUCRALFATE
  15. TUMS [Concomitant]
     Active Substance: CALCIUM CARBONATE

REACTIONS (6)
  - Blood loss anaemia [Unknown]
  - Gastrointestinal haemorrhage [Unknown]
  - Gastric antral vascular ectasia [Unknown]
  - Hypokalaemia [Unknown]
  - Seizure [Unknown]
  - Brain neoplasm benign [Unknown]

NARRATIVE: CASE EVENT DATE: 20220501
